FAERS Safety Report 20629554 (Version 1)
Quarter: 2022Q1

REPORT INFORMATION
  Report Type: Report from Study
  Country: US (occurrence: US)
  Receive Date: 20220323
  Receipt Date: 20220323
  Transmission Date: 20220423
  Serious: Yes (Hospitalization)
  Sender: FDA-Public Use
  Company Number: US-BAUSCH-BL-2022-004367

PATIENT
  Age: 67 Year
  Sex: Female

DRUGS (3)
  1. XIFAXAN [Suspect]
     Active Substance: RIFAXIMIN
     Indication: Hepatic encephalopathy
     Route: 065
  2. LACTULOSE [Suspect]
     Active Substance: LACTULOSE
     Indication: Hepatic encephalopathy
     Route: 065
  3. ZINC [Suspect]
     Active Substance: ZINC
     Indication: Hepatic encephalopathy
     Route: 065

REACTIONS (3)
  - Liver disorder [Unknown]
  - Iron deficiency anaemia [Unknown]
  - Insurance issue [Unknown]
